FAERS Safety Report 8126146-2 (Version None)
Quarter: 2012Q1

REPORT INFORMATION
  Report Type: 
  Country: None (occurrence: None)
  Receive Date: 20120209
  Receipt Date: 20120202
  Transmission Date: 20120608
  Serious: Yes (Hospitalization)
  Sender: FDA-Public Use
  Company Number: US-US-EMD SERONO, INC.-7111154

PATIENT
  Sex: Female

DRUGS (2)
  1. REBIF [Suspect]
     Indication: PRODUCT USED FOR UNKNOWN INDICATION
     Route: 058
     Dates: start: 20111121
  2. BACLOFEN [Concomitant]

REACTIONS (5)
  - DYSARTHRIA [None]
  - CENTRAL NERVOUS SYSTEM LESION [None]
  - TREMOR [None]
  - INJECTION SITE ERYTHEMA [None]
  - DROOLING [None]
